FAERS Safety Report 5819566-X (Version None)
Quarter: 2008Q3

REPORT INFORMATION
  Report Type: 
  Country: None (occurrence: None)
  Receive Date: 20080723
  Receipt Date: 20080717
  Transmission Date: 20090109
  Serious: Yes (Life-Threatening, Hospitalization, Other)
  Sender: FDA-Public Use
  Company Number: GB-ABBOTT-08P-167-0464072-00

PATIENT
  Age: 41 Year
  Sex: Female
  Weight: 50 kg

DRUGS (16)
  1. RITONAVIR SOFT GELATIN CAPSULES [Suspect]
     Indication: HIV INFECTION
     Dates: end: 20080515
  2. KALETRA [Suspect]
     Indication: DRUG USE FOR UNKNOWN INDICATION
  3. DOCETAXEL [Interacting]
     Indication: DRUG USE FOR UNKNOWN INDICATION
     Dates: start: 20080418, end: 20080418
  4. MEROPENEM [Suspect]
     Indication: DRUG USE FOR UNKNOWN INDICATION
  5. TENOFOVIR DISOPROXIL [Concomitant]
     Indication: DRUG USE FOR UNKNOWN INDICATION
  6. MORPHINE [Concomitant]
     Indication: DRUG USE FOR UNKNOWN INDICATION
  7. LAMIVUDINE [Concomitant]
     Indication: DRUG USE FOR UNKNOWN INDICATION
  8. OMEPRAZOLE [Concomitant]
     Indication: DRUG USE FOR UNKNOWN INDICATION
  9. VITAMIN E CONCENTRATES [Concomitant]
     Indication: DRUG USE FOR UNKNOWN INDICATION
  10. CASPOFUNGIN ACETATE [Concomitant]
     Indication: DRUG USE FOR UNKNOWN INDICATION
  11. TRANEXAMIC ACID [Concomitant]
     Indication: DRUG USE FOR UNKNOWN INDICATION
  12. FLUOROURACIL [Concomitant]
     Indication: DRUG USE FOR UNKNOWN INDICATION
  13. EPIRUBICIN [Concomitant]
     Indication: DRUG USE FOR UNKNOWN INDICATION
  14. CYCLOPHOSPHAMIDE ANHYDROUS [Concomitant]
     Indication: DRUG USE FOR UNKNOWN INDICATION
  15. ZIDOVUDINE [Concomitant]
     Indication: DRUG USE FOR UNKNOWN INDICATION
  16. DECAN [Concomitant]
     Indication: DRUG USE FOR UNKNOWN INDICATION

REACTIONS (8)
  - ANAEMIA [None]
  - COLITIS [None]
  - DRUG INTERACTION [None]
  - ENTEROCOLITIS HAEMORRHAGIC [None]
  - ESCHERICHIA BACTERAEMIA [None]
  - OESOPHAGITIS HAEMORRHAGIC [None]
  - PANCYTOPENIA [None]
  - STEVENS-JOHNSON SYNDROME [None]
